FAERS Safety Report 9751955 (Version 2)
Quarter: 2014Q1

REPORT INFORMATION
  Report Type: Report from Study
  Country: CL (occurrence: CL)
  Receive Date: 20131213
  Receipt Date: 20140106
  Transmission Date: 20141002
  Serious: Yes (Hospitalization)
  Sender: FDA-Public Use
  Company Number: CL-ROCHE-1319335

PATIENT
  Sex: Female
  Weight: 66 kg

DRUGS (6)
  1. ACTEMRA [Suspect]
     Indication: RHEUMATOID ARTHRITIS
     Route: 042
     Dates: start: 201306
  2. METHOTREXATE [Suspect]
     Indication: RHEUMATOID ARTHRITIS
     Route: 048
  3. PREDNISONE [Suspect]
     Indication: RHEUMATOID ARTHRITIS
     Route: 048
  4. CELEBRA [Suspect]
     Indication: RHEUMATOID ARTHRITIS
     Route: 048
  5. OMEPRAZOLE [Concomitant]
     Route: 048
  6. NAPROXEN [Concomitant]
     Indication: OSTEOPOROSIS
     Dosage: DYNAFLEX BRAND
     Route: 048

REACTIONS (6)
  - Cholelithiasis [Recovered/Resolved]
  - Diarrhoea [Not Recovered/Not Resolved]
  - Vomiting [Recovered/Resolved]
  - Gastritis [Recovered/Resolved]
  - Drug-induced liver injury [Unknown]
  - Ocular hyperaemia [Unknown]
